FAERS Safety Report 8504716-7 (Version None)
Quarter: 2012Q3

REPORT INFORMATION
  Report Type: 
  Country: None (occurrence: None)
  Receive Date: 20120711
  Receipt Date: 20081208
  Transmission Date: 20120928
  Serious: Yes (Hospitalization, Other)
  Sender: FDA-Public Use
  Company Number: TR-ROCHE-GNE273248

PATIENT
  Sex: Female

DRUGS (3)
  1. FORADIL [Concomitant]
     Indication: ASTHMA
  2. THEOPHYLLINE [Concomitant]
     Indication: ASTHMA
  3. XOLAIR [Suspect]
     Indication: ASTHMA
     Dosage: 225 MG, Q2W
     Route: 058
     Dates: start: 20081010, end: 20090101

REACTIONS (4)
  - DYSPNOEA [None]
  - SYNCOPE [None]
  - FATIGUE [None]
  - COUGH [None]
